FAERS Safety Report 17677254 (Version 1)
Quarter: 2020Q2

REPORT INFORMATION
  Report Type: Spontaneous
  Country: US (occurrence: US)
  Receive Date: 20200415
  Receipt Date: 20200415
  Transmission Date: 20200714
  Serious: No
  Sender: FDA-Public Use
  Company Number: None

PATIENT
  Age: 61 Year
  Sex: Female

DRUGS (1)
  1. PROLIA [Suspect]
     Active Substance: DENOSUMAB
     Indication: SENILE OSTEOPOROSIS
     Dosage: ?          OTHER FREQUENCY:EVERY 6 MONTHS;?
     Route: 058
     Dates: start: 20191001

REACTIONS (6)
  - Myalgia [None]
  - Neck pain [None]
  - Musculoskeletal pain [None]
  - Injury [None]
  - Back pain [None]
  - Symptom recurrence [None]

NARRATIVE: CASE EVENT DATE: 20191101
